FAERS Safety Report 22771856 (Version 3)
Quarter: 2023Q4

REPORT INFORMATION
  Report Type: Spontaneous
  Country: US (occurrence: US)
  Receive Date: 20230801
  Receipt Date: 20231006
  Transmission Date: 20240109
  Serious: No
  Sender: FDA-Public Use
  Company Number: US-PFIZER INC-PV202300130934

PATIENT
  Age: 61 Year
  Sex: Male
  Weight: 91 kg

DRUGS (7)
  1. XELJANZ XR [Suspect]
     Active Substance: TOFACITINIB CITRATE
     Indication: Rheumatoid arthritis
     Dosage: 11 MG
     Dates: start: 2018
  2. SULFASALAZINE [Concomitant]
     Active Substance: SULFASALAZINE
     Dosage: 500 MG
     Dates: start: 1990
  3. DICLOFENAC [Concomitant]
     Active Substance: DICLOFENAC
     Dosage: 75 MG
     Dates: start: 1990
  4. LEFLUNOMIDE [Concomitant]
     Active Substance: LEFLUNOMIDE
     Dosage: 105 UNK
     Dates: start: 1990
  5. HYDRALAZINE [Concomitant]
     Active Substance: HYDRALAZINE HYDROCHLORIDE
     Dosage: UNK
     Dates: start: 2022
  6. ATORVASTATIN [Concomitant]
     Active Substance: ATORVASTATIN
     Dosage: 20 MG
  7. CARVEDILOL [Concomitant]
     Active Substance: CARVEDILOL
     Dosage: 125 MG 3 TIMES

REACTIONS (1)
  - Confusional state [Unknown]
